FAERS Safety Report 18763828 (Version 2)
Quarter: 2023Q1

REPORT INFORMATION
  Report Type: Spontaneous
  Country: CA (occurrence: CA)
  Receive Date: 20210120
  Receipt Date: 20230203
  Transmission Date: 20230417
  Serious: Yes (Hospitalization, Other)
  Sender: FDA-Public Use
  Company Number: None

PATIENT
  Age: 58 Year
  Sex: Female

DRUGS (13)
  1. LEVETIRACETAM [Suspect]
     Active Substance: LEVETIRACETAM
     Indication: Status epilepticus
  2. KEPPRA [Suspect]
     Active Substance: LEVETIRACETAM
     Indication: Status epilepticus
  3. FORANE [Suspect]
     Active Substance: ISOFLURANE
     Indication: Seizure
     Dosage: LIQUID INHALATION
     Route: 055
  4. ISOFLURANE [Suspect]
     Active Substance: ISOFLURANE
     Indication: Status epilepticus
     Dosage: INHALATION GAS
     Route: 055
  5. KETAMINE [Suspect]
     Active Substance: KETAMINE
     Indication: Status epilepticus
  6. METHYLPREDNISOLONE [Suspect]
     Active Substance: METHYLPREDNISOLONE
     Indication: Status epilepticus
     Route: 042
  7. MIDAZOLAM [Suspect]
     Active Substance: MIDAZOLAM
     Indication: Status epilepticus
  8. PHENOBARBITAL [Suspect]
     Active Substance: PHENOBARBITAL
     Indication: Status epilepticus
     Dosage: 2 EVERY 1 DAYS
  9. PHENYTOIN [Suspect]
     Active Substance: PHENYTOIN
     Indication: Status epilepticus
  10. PROPOFOL [Suspect]
     Active Substance: PROPOFOL
     Indication: Status epilepticus
     Dosage: 2 EVERY 1 DAYS
  11. VALPROIC ACID [Suspect]
     Active Substance: VALPROIC ACID
     Indication: Seizure
  12. PIPERACILLIN SODIUM\TAZOBACTAM SODIUM [Concomitant]
     Active Substance: PIPERACILLIN SODIUM\TAZOBACTAM SODIUM
     Indication: Appendicitis
  13. TEGRETOL [Concomitant]
     Active Substance: CARBAMAZEPINE
     Indication: Product used for unknown indication

REACTIONS (18)
  - Abdominal distension [Recovered/Resolved]
  - Abscess [Recovered/Resolved]
  - Carbohydrate antigen 125 increased [Recovered/Resolved]
  - Cardiomegaly [Recovered/Resolved]
  - Hypotension [Recovered/Resolved]
  - Intestinal infarction [Recovered/Resolved]
  - Intestinal ischaemia [Recovered/Resolved]
  - Intestinal perforation [Recovered/Resolved]
  - Intra-abdominal pressure increased [Recovered/Resolved]
  - Large intestine perforation [Recovered/Resolved]
  - Left ventricular hypertrophy [Recovered/Resolved]
  - Maternal exposure during pregnancy [Unknown]
  - Necrosis ischaemic [Recovered/Resolved]
  - Pneumatosis [Recovered/Resolved]
  - Systemic inflammatory response syndrome [Recovered/Resolved]
  - Ultrasound ovary abnormal [Recovered/Resolved]
  - Vomiting [Recovered/Resolved]
  - Hypertrophic cardiomyopathy [Unknown]
